FAERS Safety Report 7514003-1 (Version None)
Quarter: 2011Q2

REPORT INFORMATION
  Report Type: 
  Country: None (occurrence: None)
  Receive Date: 20110531
  Receipt Date: 20110519
  Transmission Date: 20111010
  Serious: Yes (Hospitalization)
  Sender: FDA-Public Use
  Company Number: US-UCBSA-033529

PATIENT
  Sex: Male
  Weight: 103 kg

DRUGS (3)
  1. HYDROCODONE BITARTRATE [Concomitant]
     Indication: PAIN
     Dosage: 10/325 MG AS NEEDED
     Route: 048
     Dates: start: 20110415
  2. NOVOLOG [Concomitant]
  3. CIMZIA [Suspect]
     Indication: CROHN'S DISEASE
     Route: 058
     Dates: start: 20100402

REACTIONS (4)
  - DIZZINESS [None]
  - BLOOD GLUCOSE INCREASED [None]
  - ABDOMINAL PAIN [None]
  - PALPITATIONS [None]
